FAERS Safety Report 5626750-7 (Version None)
Quarter: 2008Q1

REPORT INFORMATION
  Report Type: 
  Country: None (occurrence: None)
  Receive Date: 20080214
  Receipt Date: 20080205
  Transmission Date: 20080703
  Serious: Yes (Life-Threatening)
  Sender: FDA-Public Use
  Company Number: DE-PFIZER INC-2008005149

PATIENT
  Sex: Female

DRUGS (25)
  1. NORVASC [Suspect]
     Indication: HYPERTENSION
     Route: 048
  2. RANITIC [Suspect]
     Indication: PROPHYLAXIS AGAINST GASTROINTESTINAL ULCER
     Route: 048
  3. PHENYTOIN [Suspect]
     Indication: CONVULSION PROPHYLAXIS
     Route: 048
  4. ACETYLCYSTEINE [Suspect]
     Indication: PRODUCTIVE COUGH
     Route: 048
     Dates: start: 20041005, end: 20041013
  5. METOPROLOL SUCCINATE [Suspect]
     Indication: HYPERTENSION
     Dosage: DAILY DOSE:71.25MG
     Route: 048
  6. BENALAPRIL [Suspect]
     Indication: HYPERTENSION
     Route: 048
  7. ASPIRIN [Suspect]
     Route: 048
  8. KALINOR [Suspect]
     Route: 048
     Dates: start: 20041005, end: 20041027
  9. CLEXANE [Suspect]
     Route: 058
  10. HALDOL [Suspect]
     Route: 042
     Dates: start: 20041010, end: 20041010
  11. HALDOL [Suspect]
  12. TAVOR [Suspect]
     Route: 042
     Dates: start: 20041010, end: 20041010
  13. TAVOR [Suspect]
  14. SODIUM CHLORIDE INJ [Suspect]
     Dates: start: 20041021, end: 20041026
  15. MOXONIDINE [Concomitant]
     Dates: start: 20040922, end: 20041005
  16. AMLODIPINE [Concomitant]
     Route: 048
     Dates: start: 20040922, end: 20041005
  17. TORSEMIDE [Concomitant]
     Route: 048
     Dates: start: 20040922, end: 20041007
  18. DIPIDOLOR [Concomitant]
     Route: 042
     Dates: start: 20041005, end: 20041005
  19. SAB SIMPLEX [Concomitant]
     Route: 048
     Dates: start: 20041005, end: 20041005
  20. ADALAT [Concomitant]
     Route: 048
     Dates: start: 20041005, end: 20041006
  21. MERONEM [Concomitant]
     Route: 042
     Dates: start: 20041005, end: 20041010
  22. REKAWAN [Concomitant]
     Route: 048
     Dates: start: 20041007, end: 20041010
  23. VALPROATE SODIUM [Concomitant]
     Route: 048
     Dates: start: 20041025, end: 20041026
  24. MIRTAZAPINE [Concomitant]
     Route: 048
  25. FENISTIL [Concomitant]
     Route: 048
     Dates: start: 20041026, end: 20041026

REACTIONS (1)
  - TOXIC EPIDERMAL NECROLYSIS [None]
